FAERS Safety Report 23694065 (Version 1)
Quarter: 2024Q2

REPORT INFORMATION
  Report Type: Spontaneous
  Country: GB (occurrence: GB)
  Receive Date: 20240401
  Receipt Date: 20240401
  Transmission Date: 20240716
  Serious: Yes (Other)
  Sender: FDA-Public Use
  Company Number: GB-ANIPHARMA-2024-UK-000059

PATIENT
  Age: 71 Year
  Sex: Male
  Weight: 121 kg

DRUGS (2)
  1. CANDESARTAN [Suspect]
     Active Substance: CANDESARTAN
     Indication: Product used for unknown indication
     Dosage: DOSE TEXT: 2
     Dates: start: 20240308
  2. LERCANIDIPINE HYDROCHLORIDE [Concomitant]
     Active Substance: LERCANIDIPINE HYDROCHLORIDE
     Dosage: 1, (PLEASE BOOK ROUTINE BLOOD TEST)
     Dates: start: 20230725

REACTIONS (3)
  - Rash [Unknown]
  - Pruritus [Unknown]
  - Erythema [Unknown]
